FAERS Safety Report 10361035 (Version 2)
Quarter: 2014Q3

REPORT INFORMATION
  Report Type: Report from Study
  Country: DE (occurrence: DE)
  Receive Date: 20140804
  Receipt Date: 20140804
  Transmission Date: 20150326
  Serious: Yes (Hospitalization)
  Sender: FDA-Public Use
  Company Number: PHHO2014DE007615

PATIENT

DRUGS (12)
  1. EVEROLIMUS [Suspect]
     Active Substance: EVEROLIMUS
     Indication: RENAL TRANSPLANT
     Dosage: 0.75-0-0.75 MG, BID
     Route: 048
     Dates: start: 20140425, end: 20140504
  2. CICLOSPORIN [Suspect]
     Active Substance: CYCLOSPORINE
     Indication: RENAL TRANSPLANT
     Dosage: 175-0-175 MG, BID
     Route: 048
     Dates: start: 20140513, end: 20140515
  3. TORASEMID [Concomitant]
     Active Substance: TORSEMIDE
     Indication: HYPERTENSION
     Dosage: 20 MG/D
     Route: 048
     Dates: start: 20140520
  4. ACTRAPID [Concomitant]
     Active Substance: INSULIN HUMAN
     Indication: TYPE 2 DIABETES MELLITUS
     Dosage: PRN
  5. EVEROLIMUS [Suspect]
     Active Substance: EVEROLIMUS
     Dosage: 1.25-0-1.25 MG, BID
     Route: 048
     Dates: start: 20140521
  6. EVEROLIMUS [Suspect]
     Active Substance: EVEROLIMUS
     Dosage: 1-0-1 MG, BID
     Route: 048
     Dates: start: 20140505, end: 20140513
  7. PREDNISOLONE SANDOZ [Suspect]
     Active Substance: PREDNISOLONE
     Dosage: 7.5 MG/D
     Route: 048
     Dates: start: 20140625
  8. METOPROLOL [Concomitant]
     Active Substance: METOPROLOL
     Indication: HYPERTENSION
     Dosage: 190 MG/DAY
     Route: 048
     Dates: start: 20140701
  9. EVEROLIMUS [Suspect]
     Active Substance: EVEROLIMUS
     Dosage: 1.25-0-1.25 MG, BID
     Route: 048
     Dates: start: 20140514, end: 20140520
  10. PREDNISOLONE SANDOZ [Suspect]
     Active Substance: PREDNISOLONE
     Indication: RENAL TRANSPLANT
     Dosage: 30 MG, QD
     Route: 048
     Dates: start: 20140516
  11. CICLOSPORIN [Suspect]
     Active Substance: CYCLOSPORINE
     Dosage: 150-0-150 MG, BID
     Route: 048
     Dates: start: 20140516
  12. EVEROLIMUS [Suspect]
     Active Substance: EVEROLIMUS
     Dosage: 1 MG/D
     Route: 048
     Dates: start: 20140701

REACTIONS (3)
  - Pharyngitis [Recovered/Resolved]
  - Impaired healing [Unknown]
  - Stomatitis [Recovered/Resolved]

NARRATIVE: CASE EVENT DATE: 20140518
